FAERS Safety Report 12696691 (Version 5)
Quarter: 2016Q4

REPORT INFORMATION
  Report Type: Report from Study
  Country: US (occurrence: US)
  Receive Date: 20160830
  Receipt Date: 20161024
  Transmission Date: 20170207
  Serious: Yes (Death, Hospitalization, Other)
  Sender: FDA-Public Use
  Company Number: US-GILEAD-2016-0230026

PATIENT
  Age: 67 Year
  Sex: Male
  Weight: 71.66 kg

DRUGS (8)
  1. LASIX [Concomitant]
     Active Substance: FUROSEMIDE
  2. LISINOPRIL. [Concomitant]
     Active Substance: LISINOPRIL
  3. ADCIRCA [Concomitant]
     Active Substance: TADALAFIL
  4. DIGOXIN. [Concomitant]
     Active Substance: DIGOXIN
  5. AMBRISENTAN [Suspect]
     Active Substance: AMBRISENTAN
     Indication: PULMONARY ARTERIAL HYPERTENSION
     Dosage: 5 MG, QD
     Route: 048
     Dates: start: 20160712
  6. POTASSIUM [Concomitant]
     Active Substance: POTASSIUM
  7. METOPROLOL. [Concomitant]
     Active Substance: METOPROLOL
  8. AMBRISENTAN [Suspect]
     Active Substance: AMBRISENTAN
     Indication: HEPATIC CIRRHOSIS

REACTIONS (4)
  - Multiple organ dysfunction syndrome [Fatal]
  - Cerebrovascular accident [Fatal]
  - Cardio-respiratory arrest [Fatal]
  - Fluid overload [Not Recovered/Not Resolved]

NARRATIVE: CASE EVENT DATE: 20160822
